FAERS Safety Report 6084164-2 (Version None)
Quarter: 2009Q1

REPORT INFORMATION
  Report Type: 
  Country: None (occurrence: None)
  Receive Date: 20090219
  Receipt Date: 20090209
  Transmission Date: 20090719
  Serious: Yes (Hospitalization, Other)
  Sender: FDA-Public Use
  Company Number: DE-TEVA-183931ISR

PATIENT
  Sex: Male

DRUGS (6)
  1. AMLODIPINE [Suspect]
     Route: 048
  2. METOPROLOL SUCCINATE [Suspect]
  3. HYDROCHLOROTHIAZIDE [Suspect]
     Route: 048
  4. RAMIPRIL [Suspect]
     Route: 048
  5. INSULIN HUMAN (ACTRAPHANE) [Concomitant]
     Indication: INSULIN-REQUIRING TYPE 2 DIABETES MELLITUS
     Dosage: 1 DF
     Route: 048
     Dates: start: 20040101, end: 20081103
  6. ENALAPRIL [Concomitant]
     Indication: HYPERTENSION
     Dosage: 1 DF
     Route: 048
     Dates: start: 20040101, end: 20081101

REACTIONS (1)
  - COOMBS POSITIVE HAEMOLYTIC ANAEMIA [None]
